FAERS Safety Report 14100339 (Version 2)
Quarter: 2017Q4

REPORT INFORMATION
  Report Type: Spontaneous
  Country: SE (occurrence: SE)
  Receive Date: 20171017
  Receipt Date: 20171025
  Transmission Date: 20180321
  Serious: Yes (Death, Other)
  Sender: FDA-Public Use
  Company Number: SE-GILEAD-2017-0299011

PATIENT
  Age: 62 Year
  Sex: Female

DRUGS (9)
  1. RIBAVIRIN. [Suspect]
     Active Substance: RIBAVIRIN
     Indication: CHRONIC HEPATITIS C
     Dosage: 3+0+2
     Route: 048
     Dates: start: 20160224, end: 20160809
  2. SOVALDI [Suspect]
     Active Substance: SOFOSBUVIR
     Indication: CHRONIC HEPATITIS C
     Route: 048
     Dates: start: 20160224, end: 20160809
  3. LYRICA [Concomitant]
     Active Substance: PREGABALIN
  4. SOVALDI [Suspect]
     Active Substance: SOFOSBUVIR
     Indication: HEPATITIS C
  5. METHADONE [Concomitant]
     Active Substance: METHADONE HYDROCHLORIDE
  6. DAKLINZA [Suspect]
     Active Substance: DACLATASVIR
     Indication: CHRONIC HEPATITIS C
     Route: 048
     Dates: start: 20160224, end: 20160809
  7. HERCEPTIN [Concomitant]
     Active Substance: TRASTUZUMAB
  8. FURIX [Concomitant]
     Active Substance: FUROSEMIDE
  9. SPIRONOLACTONE. [Concomitant]
     Active Substance: SPIRONOLACTONE

REACTIONS (1)
  - Breast cancer metastatic [Fatal]

NARRATIVE: CASE EVENT DATE: 201705
